FAERS Safety Report 4706619-2 (Version None)
Quarter: 2005Q3

REPORT INFORMATION
  Report Type: 
  Country: None (occurrence: None)
  Receive Date: 20050705
  Receipt Date: 20050411
  Transmission Date: 20060218
  Serious: Yes (Hospitalization)
  Sender: FDA-Public Use
  Company Number: JP-ROCHE-402011

PATIENT
  Age: 43 Year
  Sex: Female

DRUGS (3)
  1. TAMIFLU [Suspect]
     Indication: INFLUENZA
     Route: 048
     Dates: start: 20050323, end: 20050324
  2. CALONAL [Concomitant]
     Route: 048
     Dates: start: 20050323, end: 20050324
  3. ALPINY [Concomitant]
     Route: 054
     Dates: start: 20050325, end: 20050325

REACTIONS (3)
  - GINGIVAL OEDEMA [None]
  - MOUTH ULCERATION [None]
  - STOMATITIS [None]
